FAERS Safety Report 6233981-4 (Version None)
Quarter: 2009Q2

REPORT INFORMATION
  Report Type: 
  Country: None (occurrence: None)
  Receive Date: 20090618
  Receipt Date: 20090611
  Transmission Date: 20091009
  Serious: Yes (Hospitalization)
  Sender: FDA-Public Use
  Company Number: JP-SP-2009-02230

PATIENT
  Age: 66 Year
  Sex: Female

DRUGS (6)
  1. IMMUCYST [Suspect]
     Indication: CARCINOMA IN SITU OF BLADDER
     Route: 043
     Dates: start: 20081126, end: 20090512
  2. LEVOFLOXACIN [Suspect]
     Indication: INFECTION PROPHYLAXIS
     Route: 048
     Dates: start: 20090331, end: 20090512
  3. LOXOPROFEN SODIUM [Suspect]
     Indication: PAIN PROPHYLAXIS
     Dosage: 60-180 MG
     Route: 048
     Dates: start: 20081126, end: 20090512
  4. DICLOFENAC SODIUM [Suspect]
     Indication: PAIN PROPHYLAXIS
     Dosage: 50-225 MG
     Route: 054
     Dates: start: 20081126, end: 20090520
  5. CHINESE MEDICINE [Concomitant]
  6. REBAMIPIDE [Concomitant]
     Dates: start: 20081126

REACTIONS (3)
  - ABDOMINAL PAIN [None]
  - HEPATIC FUNCTION ABNORMAL [None]
  - LIVER DISORDER [None]
